FAERS Safety Report 8654382 (Version 3)
Quarter: 2013Q4

REPORT INFORMATION
  Report Type: Spontaneous
  Country: IN (occurrence: IN)
  Receive Date: 20120709
  Receipt Date: 20131031
  Transmission Date: 20140711
  Serious: Yes (Other)
  Sender: FDA-Public Use
  Company Number: IN-MERCK-1206USA04399

PATIENT
  Age: 59 Year
  Sex: 0

DRUGS (1)
  1. JANUMET [Suspect]
     Dosage: 500MG/50
     Route: 048

REACTIONS (1)
  - Weight decreased [Unknown]
